FAERS Safety Report 16789598 (Version 1)
Quarter: 2019Q3

REPORT INFORMATION
  Report Type: Spontaneous
  Country: CL (occurrence: CL)
  Receive Date: 20190910
  Receipt Date: 20190910
  Transmission Date: 20191005
  Serious: Yes (Hospitalization)
  Sender: FDA-Public Use
  Company Number: CL-MYLANLABS-2019M1063294

PATIENT
  Age: 29 Year
  Sex: Female

DRUGS (1)
  1. LEPONEX [Suspect]
     Active Substance: CLOZAPINE
     Indication: PRODUCT USED FOR UNKNOWN INDICATION
     Dosage: 100 MILLIGRAM, QD
     Route: 048

REACTIONS (10)
  - Mean cell haemoglobin concentration decreased [Not Recovered/Not Resolved]
  - White blood cell count decreased [Not Recovered/Not Resolved]
  - Haemoglobin distribution width increased [Recovering/Resolving]
  - Haemoglobin decreased [Unknown]
  - Anisocytosis [Unknown]
  - Red cell distribution width increased [Recovering/Resolving]
  - Mean cell volume decreased [Recovering/Resolving]
  - Mean cell haemoglobin decreased [Unknown]
  - Intestinal obstruction [Unknown]
  - Platelet count increased [Unknown]

NARRATIVE: CASE EVENT DATE: 20190618
